FAERS Safety Report 8866465 (Version 2)
Quarter: 2012Q4

REPORT INFORMATION
  Report Type: 
  Country: JP (occurrence: JP)
  Receive Date: 20121025
  Receipt Date: 20121101
  Transmission Date: 20130627
  Serious: Yes (Other)
  Sender: FDA-Public Use
  Company Number: JP-PFIZER INC-2012264720

PATIENT
  Age: 33 Year
  Sex: Male

DRUGS (3)
  1. HALCION [Suspect]
     Indication: SLEEP LOSS
     Dosage: 0.25 mg, daily
     Route: 048
     Dates: start: 20121018
  2. DEPAKENE [Suspect]
     Dosage: 400 mg daily
     Route: 048
     Dates: start: 20121018
  3. PHENOBAL [Suspect]
     Dosage: 100 mg daily
     Route: 030
     Dates: start: 20121018

REACTIONS (1)
  - Blood creatine phosphokinase increased [Unknown]
